FAERS Safety Report 7483404-2 (Version None)
Quarter: 2011Q2

REPORT INFORMATION
  Report Type: 
  Country: None (occurrence: None)
  Receive Date: 20110509
  Receipt Date: 20110425
  Transmission Date: 20111010
  Serious: Yes (Death)
  Sender: FDA-Public Use
  Company Number: 2011P1006150

PATIENT
  Sex: Male

DRUGS (2)
  1. FENTANYL [Suspect]
     Indication: HOMICIDE
  2. FENTANYL [Suspect]
     Indication: HOMICIDE

REACTIONS (9)
  - SOMNOLENCE [None]
  - ACCIDENT [None]
  - RESUSCITATION [None]
  - APNOEA [None]
  - HOMICIDE [None]
  - INCORRECT ROUTE OF DRUG ADMINISTRATION [None]
  - DRUG LEVEL INCREASED [None]
  - WRONG TECHNIQUE IN DRUG USAGE PROCESS [None]
  - LOSS OF CONSCIOUSNESS [None]
